FAERS Safety Report 7885098-0 (Version None)
Quarter: 2011Q4

REPORT INFORMATION
  Report Type: 
  Country: None (occurrence: None)
  Receive Date: 20111102
  Receipt Date: 20111028
  Transmission Date: 20120403
  Serious: Yes (Death, Hospitalization)
  Sender: FDA-Public Use
  Company Number: TW-PFIZER INC-2006124947

PATIENT
  Age: 64 Year
  Sex: Female

DRUGS (17)
  1. METOCLOPRAMIDE [Concomitant]
     Route: 048
     Dates: start: 20061010
  2. LASIX [Concomitant]
     Route: 042
     Dates: start: 20061011, end: 20061012
  3. SUNITINIB MALATE [Suspect]
     Dosage: 37.5 MG, 1X/DAY
     Dates: start: 20060906, end: 20061003
  4. GASCON [Concomitant]
     Indication: FLATULENCE
     Route: 048
     Dates: start: 20061009, end: 20061019
  5. SPIRONOLACTONE [Concomitant]
     Route: 048
     Dates: start: 20061010, end: 20061019
  6. BUPRENORPHINE [Concomitant]
     Route: 048
     Dates: start: 20061013
  7. SLOW-K [Concomitant]
     Route: 048
     Dates: start: 20061009, end: 20061011
  8. DICLOFENAC [Concomitant]
     Route: 048
     Dates: start: 20061012, end: 20061013
  9. VITAMIN K TAB [Concomitant]
     Route: 042
     Dates: start: 20061013, end: 20061019
  10. SENNOSIDE A [Concomitant]
     Route: 048
     Dates: start: 20061014, end: 20061019
  11. SUNITINIB MALATE [Suspect]
     Indication: GASTROINTESTINAL STROMAL TUMOUR
     Dosage: 50 MG, 1X/DAY
     Dates: start: 20060614, end: 20060905
  12. DOMPERIDONE [Concomitant]
     Route: 048
     Dates: start: 20061009, end: 20061019
  13. LORAZEPAM [Concomitant]
     Route: 048
     Dates: start: 20061012, end: 20061013
  14. MEDROXYPROGESTERONE ACETATE [Concomitant]
     Route: 048
     Dates: start: 20061009, end: 20061019
  15. ACETAMINOPHEN [Concomitant]
     Route: 048
     Dates: start: 20061010, end: 20061010
  16. FUROSEMIDE [Concomitant]
     Route: 048
     Dates: start: 20061005, end: 20061019
  17. MAGNESIUM OXIDE [Concomitant]
     Route: 048
     Dates: start: 20061014, end: 20061019

REACTIONS (3)
  - JAUNDICE [None]
  - DISEASE PROGRESSION [None]
  - GASTROINTESTINAL STROMAL TUMOUR [None]
